FAERS Safety Report 7348430-2 (Version None)
Quarter: 2011Q1

REPORT INFORMATION
  Report Type: 
  Country: None (occurrence: None)
  Receive Date: 20110311
  Receipt Date: 20110303
  Transmission Date: 20110831
  Serious: Yes (Death, Hospitalization)
  Sender: FDA-Public Use
  Company Number: US-MPIJNJ-2011-00863

PATIENT
  Age: 76 Year
  Sex: Male
  Weight: 97.506 kg

DRUGS (1)
  1. VELCADE [Suspect]
     Indication: MULTIPLE MYELOMA
     Dosage: UNK MG, CYCLIC
     Route: 042
     Dates: start: 20100907, end: 20100921

REACTIONS (3)
  - DEATH [None]
  - PYREXIA [None]
  - CYTOMEGALOVIRUS INFECTION [None]
